FAERS Safety Report 20855034 (Version 4)
Quarter: 2022Q2

REPORT INFORMATION
  Report Type: Spontaneous
  Country: US (occurrence: US)
  Receive Date: 20220520
  Receipt Date: 20220527
  Transmission Date: 20220720
  Serious: Yes (Hospitalization)
  Sender: FDA-Public Use
  Company Number: US-KARYOPHARM-2022KPT000471

PATIENT

DRUGS (1)
  1. XPOVIO [Suspect]
     Active Substance: SELINEXOR
     Indication: Plasma cell myeloma
     Dosage: 40 MG, 2X/WEEK ON MONDAYS AND WEDNESDAYS
     Route: 048
     Dates: start: 20220404, end: 2022

REACTIONS (8)
  - Clostridium difficile infection [Unknown]
  - Abdominal discomfort [Not Recovered/Not Resolved]
  - Salivary hypersecretion [Unknown]
  - Dyspepsia [Unknown]
  - Insomnia [Unknown]
  - Vomiting [Unknown]
  - Decreased appetite [Not Recovered/Not Resolved]
  - Nausea [Unknown]

NARRATIVE: CASE EVENT DATE: 20220101
